FAERS Safety Report 13738707 (Version 2)
Quarter: 2017Q4

REPORT INFORMATION
  Report Type: Spontaneous
  Country: US (occurrence: US)
  Receive Date: 20170710
  Receipt Date: 20171027
  Transmission Date: 20180320
  Serious: Yes (Other)
  Sender: FDA-Public Use
  Company Number: US-SAOL THERAPEUTICS-2017SAO00447

PATIENT
  Sex: Male

DRUGS (4)
  1. BACLOFEN. [Suspect]
     Active Substance: BACLOFEN
     Indication: SPINAL OPERATION
  2. FENTANYL. [Suspect]
     Active Substance: FENTANYL
  3. BACLOFEN. [Suspect]
     Active Substance: BACLOFEN
     Indication: PAIN
  4. CLONIDINE. [Suspect]
     Active Substance: CLONIDINE

REACTIONS (7)
  - Dysstasia [Unknown]
  - Drug ineffective for unapproved indication [Unknown]
  - Fall [Unknown]
  - Pain [Unknown]
  - Feeling abnormal [Unknown]
  - Device failure [Unknown]
  - Gait inability [Unknown]

NARRATIVE: CASE EVENT DATE: 20170303
